FAERS Safety Report 10952782 (Version 1)
Quarter: 2015Q1

REPORT INFORMATION
  Report Type: Spontaneous
  Country: US (occurrence: US)
  Receive Date: 20150325
  Receipt Date: 20150325
  Transmission Date: 20150721
  Serious: Yes (Other)
  Sender: FDA-Public Use
  Company Number: US-AMGEN-USASP2015027031

PATIENT
  Age: 67 Year
  Sex: Female

DRUGS (1)
  1. PROLIA [Suspect]
     Active Substance: DENOSUMAB
     Indication: PRODUCT USED FOR UNKNOWN INDICATION
     Dosage: UNK
     Route: 065
     Dates: start: 201303

REACTIONS (8)
  - Pain in extremity [Unknown]
  - Arthritis [Unknown]
  - Fall [Unknown]
  - Arthralgia [Unknown]
  - Cystitis [Unknown]
  - Mobility decreased [Unknown]
  - Foot fracture [Unknown]
  - Tooth fracture [Unknown]

NARRATIVE: CASE EVENT DATE: 2014
